FAERS Safety Report 4945239-1 (Version None)
Quarter: 2006Q1

REPORT INFORMATION
  Report Type: 
  Country: None (occurrence: None)
  Receive Date: 20060315
  Receipt Date: 20060315
  Transmission Date: 20060701
  Serious: Yes (Other)
  Sender: FDA-Public Use
  Company Number: None

PATIENT
  Age: 85 Year
  Sex: Male

DRUGS (3)
  1. KETEK [Suspect]
     Indication: SINUSITIS
     Dosage: 2 TABS  QD  PO
     Route: 048
     Dates: start: 20060301, end: 20060302
  2. PREDNISONE [Concomitant]
  3. MESTINON [Concomitant]

REACTIONS (4)
  - CONDITION AGGRAVATED [None]
  - DYSARTHRIA [None]
  - DYSPHAGIA [None]
  - MYASTHENIA GRAVIS [None]
